FAERS Safety Report 5505999-8 (Version None)
Quarter: 2007Q4

REPORT INFORMATION
  Report Type: 
  Country: None (occurrence: None)
  Receive Date: 20071102
  Receipt Date: 20071102
  Transmission Date: 20080405
  Serious: No
  Sender: FDA-Public Use
  Company Number: None

PATIENT
  Age: 75 Year
  Sex: Female
  Weight: 89.3586 kg

DRUGS (2)
  1. PRILOSEC OTC [Suspect]
     Indication: GASTROOESOPHAGEAL REFLUX DISEASE
     Dosage: 20 MG ONE BID
  2. PRILOSEC OTC [Suspect]
     Indication: IMPAIRED GASTRIC EMPTYING
     Dosage: 20 MG ONE BID

REACTIONS (1)
  - VOMITING [None]
